FAERS Safety Report 6657498-8 (Version None)
Quarter: 2010Q1

REPORT INFORMATION
  Report Type: 
  Country: None (occurrence: None)
  Receive Date: 20100330
  Receipt Date: 20100326
  Transmission Date: 20100710
  Serious: Yes (Death, Hospitalization, Other)
  Sender: FDA-Public Use
  Company Number: PHEH2009US13332

PATIENT
  Sex: Female

DRUGS (4)
  1. EXJADE [Suspect]
     Indication: MYELODYSPLASTIC SYNDROME
     Dosage: 1250 MG DAILY
     Route: 048
     Dates: start: 20090413, end: 20090630
  2. ACTONEL [Concomitant]
  3. SYNTHROID [Concomitant]
  4. FERRITIN [Concomitant]
     Route: 048

REACTIONS (5)
  - DEATH [None]
  - HAEMOGLOBIN DECREASED [None]
  - OEDEMA PERIPHERAL [None]
  - PLATELET COUNT DECREASED [None]
  - WHITE BLOOD CELL COUNT DECREASED [None]
